FAERS Safety Report 8520112-0 (Version None)
Quarter: 2012Q3

REPORT INFORMATION
  Report Type: 
  Country: None (occurrence: None)
  Receive Date: 20120719
  Receipt Date: 20120713
  Transmission Date: 20120928
  Serious: Yes (Other)
  Sender: FDA-Public Use
  Company Number: US-BAYER-2010-000610

PATIENT
  Age: 28 Year
  Sex: Female
  Weight: 77.098 kg

DRUGS (5)
  1. YASMIN [Suspect]
     Dosage: UNK
     Dates: start: 20010101, end: 20030101
  2. PROTONIX [Concomitant]
  3. CELEXA [Concomitant]
     Dosage: 20 MG, UNK
     Route: 048
  4. NYSTATIN [Concomitant]
  5. MIRALAX [Concomitant]

REACTIONS (2)
  - GALLBLADDER INJURY [None]
  - BILIARY DYSKINESIA [None]
